FAERS Safety Report 21769327 (Version 2)
Quarter: 2023Q1

REPORT INFORMATION
  Report Type: Spontaneous
  Country: US (occurrence: US)
  Receive Date: 20221223
  Receipt Date: 20230116
  Transmission Date: 20230418
  Serious: No
  Sender: FDA-Public Use
  Company Number: US-AMGEN-USASP2022218485

PATIENT
  Age: 66 Year
  Sex: Female
  Weight: 59.41 kg

DRUGS (1)
  1. PROLIA [Suspect]
     Active Substance: DENOSUMAB
     Indication: Osteoporosis
     Dosage: UNK, Q6MO
     Route: 065
     Dates: start: 201809

REACTIONS (7)
  - Muscle strain [Unknown]
  - Wound [Unknown]
  - Walking aid user [Not Recovered/Not Resolved]
  - Product storage error [Unknown]
  - Arthralgia [Unknown]
  - Accident [Unknown]
  - Intercepted product administration error [Unknown]

NARRATIVE: CASE EVENT DATE: 20221215
